FAERS Safety Report 20892418 (Version 1)
Quarter: 2022Q2

REPORT INFORMATION
  Report Type: Spontaneous
  Country: NL (occurrence: NL)
  Receive Date: 20220531
  Receipt Date: 20220531
  Transmission Date: 20220721
  Serious: Yes (Other)
  Sender: FDA-Public Use
  Company Number: NL-LRB-00798859

PATIENT
  Weight: 80 kg

DRUGS (1)
  1. NOREPINEPHRINE [Suspect]
     Active Substance: NOREPINEPHRINE
     Indication: Hypotension
     Dosage: LED EFFECT
     Route: 065
     Dates: start: 202105

REACTIONS (2)
  - Hypertensive crisis [Recovered/Resolved]
  - Therapeutic response unexpected [Unknown]
